FAERS Safety Report 14020725 (Version 1)
Quarter: 2017Q3

REPORT INFORMATION
  Report Type: Spontaneous
  Country: US (occurrence: US)
  Receive Date: 20170928
  Receipt Date: 20170928
  Transmission Date: 20171128
  Serious: No
  Sender: FDA-Public Use
  Company Number: US-GLAXOSMITHKLINE-US2017GSK149480

PATIENT
  Age: 70 Year
  Sex: Female

DRUGS (16)
  1. ADVAIR DISKUS [Suspect]
     Active Substance: FLUTICASONE PROPIONATE\SALMETEROL XINAFOATE
     Indication: ASTHMA
  2. VICTOZA [Concomitant]
     Active Substance: LIRAGLUTIDE
  3. NAPROSYN [Concomitant]
     Active Substance: NAPROXEN
  4. ADVAIR DISKUS [Suspect]
     Active Substance: FLUTICASONE PROPIONATE\SALMETEROL XINAFOATE
     Indication: CHRONIC OBSTRUCTIVE PULMONARY DISEASE
     Dosage: 1 PUFF(S), BID
     Route: 055
  5. NEBULIZED ALBUTEROL [Concomitant]
     Active Substance: ALBUTEROL
  6. AMLODIPINE + BENAZEPRIL [Concomitant]
     Active Substance: AMLODIPINE BESYLATE\BENAZEPRIL HYDROCHLORIDE
  7. BUSPIRONE [Concomitant]
     Active Substance: BUSPIRONE HYDROCHLORIDE
  8. TRIAMTERENE. [Concomitant]
     Active Substance: TRIAMTERENE
  9. LOVASTATIN. [Concomitant]
     Active Substance: LOVASTATIN
  10. ATENOLOL. [Concomitant]
     Active Substance: ATENOLOL
  11. PROAIR INHALER [Concomitant]
     Active Substance: ALBUTEROL SULFATE
  12. FLUTICASONE PROPIONATE. [Concomitant]
     Active Substance: FLUTICASONE PROPIONATE
  13. LANTUS [Concomitant]
     Active Substance: INSULIN GLARGINE
  14. PROZAC [Concomitant]
     Active Substance: FLUOXETINE HYDROCHLORIDE
  15. METFORMIN [Concomitant]
     Active Substance: METFORMIN HYDROCHLORIDE
  16. ALPRAZOLAM. [Concomitant]
     Active Substance: ALPRAZOLAM

REACTIONS (4)
  - Dyspnoea [Recovering/Resolving]
  - Cough [Recovered/Resolved]
  - Product quality issue [Unknown]
  - Wrong technique in device usage process [Unknown]

NARRATIVE: CASE EVENT DATE: 20170820
